FAERS Safety Report 8612317-5 (Version None)
Quarter: 2012Q3

REPORT INFORMATION
  Report Type: 
  Country: None (occurrence: None)
  Receive Date: 20120822
  Receipt Date: 20120817
  Transmission Date: 20120928
  Serious: Yes (Hospitalization)
  Sender: FDA-Public Use
  Company Number: FR-TEVA-353881USA

PATIENT
  Sex: Female
  Weight: 62 kg

DRUGS (5)
  1. TREANDA [Suspect]
     Route: 042
     Dates: start: 20120606
  2. ASPIRIN [Concomitant]
     Dates: start: 20120606, end: 20120613
  3. PRAXADA [Concomitant]
     Dates: start: 20120606, end: 20120613
  4. MINISINTROM [Concomitant]
     Dates: start: 20120613
  5. RITUXIMAB [Suspect]
     Route: 042
     Dates: start: 20120606

REACTIONS (1)
  - ARRHYTHMIA [None]
